FAERS Safety Report 7712016-8 (Version None)
Quarter: 2011Q3

REPORT INFORMATION
  Report Type: 
  Country: None (occurrence: None)
  Receive Date: 20110822
  Receipt Date: 20110805
  Transmission Date: 20111222
  Serious: Yes (Other)
  Sender: FDA-Public Use
  Company Number: 163-21880-11081296

PATIENT
  Age: 57 Year
  Sex: Male

DRUGS (2)
  1. DEXAMETHASONE [Suspect]
     Indication: MULTIPLE MYELOMA
  2. REVLIMID [Suspect]
     Indication: MULTIPLE MYELOMA
     Dosage: PO
     Route: 048
     Dates: start: 20050527, end: 20051011

REACTIONS (1)
  - BASAL CELL CARCINOMA [None]
